FAERS Safety Report 4390962-3 (Version None)
Quarter: 2004Q3

REPORT INFORMATION
  Report Type: 
  Country: None (occurrence: None)
  Receive Date: 20040706
  Receipt Date: 20040618
  Transmission Date: 20050211
  Serious: Yes (Death)
  Sender: FDA-Public Use
  Company Number: A-US2004-06652

PATIENT

DRUGS (1)
  1. TRACLEER [Suspect]

REACTIONS (1)
  - DEATH [None]
